FAERS Safety Report 12325658 (Version 2)
Quarter: 2016Q2

REPORT INFORMATION
  Report Type: Report from Study
  Country: BE (occurrence: BE)
  Receive Date: 20160503
  Receipt Date: 20160504
  Transmission Date: 20160815
  Serious: Yes (Hospitalization)
  Sender: FDA-Public Use
  Company Number: BE-ASTRAZENECA-2016SE44044

PATIENT
  Age: 66 Year
  Sex: Male

DRUGS (2)
  1. TICAGRELOR [Suspect]
     Active Substance: TICAGRELOR
     Indication: ACUTE CORONARY SYNDROME
     Dosage: 180 MG DAILY
     Route: 048
     Dates: start: 20150122, end: 20150324
  2. ACETYLSALICYLIC ACID [Suspect]
     Active Substance: ASPIRIN
     Indication: ACUTE CORONARY SYNDROME
     Dosage: MAINTENACE DOSE NON-AZ PRODUCT
     Route: 048
     Dates: end: 20150224

REACTIONS (4)
  - Road traffic accident [Recovered/Resolved]
  - Brain contusion [Recovered/Resolved]
  - Face injury [Recovered/Resolved]
  - Avulsion fracture [Recovered/Resolved]

NARRATIVE: CASE EVENT DATE: 20150828
